FAERS Safety Report 24823700 (Version 3)
Quarter: 2025Q1

REPORT INFORMATION
  Report Type: Spontaneous
  Country: PK (occurrence: PK)
  Receive Date: 20250109
  Receipt Date: 20250310
  Transmission Date: 20250409
  Serious: Yes (Other)
  Sender: AMGEN
  Company Number: PK-PFIZER INC-PV202300197124

PATIENT
  Age: 50 Year
  Sex: Female

DRUGS (15)
  1. ENBREL [Suspect]
     Active Substance: ETANERCEPT
     Indication: Psoriatic arthropathy
     Dosage: 50 MG, WEEKLY
     Route: 058
     Dates: start: 20230825
  2. ENBREL [Suspect]
     Active Substance: ETANERCEPT
     Dosage: 50 MG, WEEKLY
     Route: 058
     Dates: start: 20240824
  3. Lara [Concomitant]
     Route: 065
  4. Sangobion [Concomitant]
     Route: 065
  5. Imo [Concomitant]
  6. LANTUS [Concomitant]
     Active Substance: INSULIN GLARGINE
     Route: 065
  7. NOVORAPID [Concomitant]
     Active Substance: INSULIN ASPART
     Route: 065
  8. Carsel [Concomitant]
     Route: 065
  9. Xenglu met [Concomitant]
     Route: 065
  10. Cara [Concomitant]
     Route: 065
  11. FEBUXOSTAT [Concomitant]
     Active Substance: FEBUXOSTAT
     Route: 065
  12. Gabica [Concomitant]
     Route: 065
  13. Neuromet [Concomitant]
     Route: 065
  14. ONDANSETRON HYDROCHLORIDE [Concomitant]
     Active Substance: ONDANSETRON HYDROCHLORIDE
     Route: 065
  15. Recita [Concomitant]
     Route: 065

REACTIONS (7)
  - Dialysis [Unknown]
  - Pain [Unknown]
  - Intentional product misuse [Unknown]
  - Osteoarthritis [Unknown]
  - Blood uric acid increased [Unknown]
  - Illness [Unknown]
  - Pain in extremity [Unknown]
